FAERS Safety Report 7170829-8 (Version None)
Quarter: 2010Q4

REPORT INFORMATION
  Report Type: 
  Country: None (occurrence: None)
  Receive Date: 20101206
  Receipt Date: 20101122
  Transmission Date: 20110411
  Serious: Yes (Hospitalization)
  Sender: FDA-Public Use
  Company Number: 2010P1002306

PATIENT
  Age: 27 Year
  Sex: Female
  Weight: 58.9676 kg

DRUGS (9)
  1. FENTANYL-25 [Suspect]
     Indication: ABDOMINAL PAIN UPPER
     Dosage: 25 MCG/HR;Q3D;TDER
     Route: 062
     Dates: end: 20100801
  2. FENTANYL-25 [Suspect]
     Indication: GASTROENTERITIS EOSINOPHILIC
     Dosage: 25 MCG/HR;Q3D;TDER
     Route: 062
     Dates: end: 20100801
  3. FENTANYL-25 [Suspect]
  4. FENTANYL-25 [Suspect]
  5. FENTANYL-25 [Suspect]
  6. FENTANYL-25 [Suspect]
  7. FENTANYL-25 [Suspect]
  8. OXYCODONE HCL [Concomitant]
  9. OTHER UNKNOWN MEDICATIONS [Concomitant]

REACTIONS (5)
  - ABDOMINAL PAIN [None]
  - DRUG EFFECT DECREASED [None]
  - NAUSEA [None]
  - OVERDOSE [None]
  - VOMITING [None]
